FAERS Safety Report 5195081-4 (Version None)
Quarter: 2006Q4

REPORT INFORMATION
  Report Type: 
  Country: None (occurrence: None)
  Receive Date: 20061229
  Receipt Date: 20051109
  Transmission Date: 20070319
  Serious: Yes (Other)
  Sender: FDA-Public Use
  Company Number: FR-SHR-FR-2005-023732

PATIENT
  Sex: Female

DRUGS (1)
  1. BETAFERON [Suspect]
     Indication: MULTIPLE SCLEROSIS
     Dosage: 8 MIU, 3X/WEEK
     Route: 058

REACTIONS (1)
  - HAEMOLYTIC ANAEMIA [None]
